FAERS Safety Report 7153280-6 (Version None)
Quarter: 2010Q4

REPORT INFORMATION
  Report Type: 
  Country: None (occurrence: None)
  Receive Date: 20101213
  Receipt Date: 20101129
  Transmission Date: 20110411
  Serious: Yes (Other)
  Sender: FDA-Public Use
  Company Number: BR-ROCHE-745006

PATIENT
  Sex: Female
  Weight: 70 kg

DRUGS (8)
  1. RIVOTRIL [Suspect]
     Indication: PANIC DISORDER
     Dosage: FREQUENCY: 12/12 HOURS
     Route: 048
     Dates: start: 20010101
  2. SIMVASTATIN [Suspect]
     Indication: BLOOD CHOLESTEROL ABNORMAL
     Dosage: ONE TABLET A DAY
     Route: 065
  3. PAMELOR [Suspect]
     Indication: SLEEP DISORDER THERAPY
     Route: 065
  4. PAMELOR [Suspect]
     Route: 065
  5. TRYPTANOL [Suspect]
     Indication: DEPRESSION
     Dosage: THERAPY START DATE A LONG TIME AGO
     Route: 065
  6. LEXOTAN [Concomitant]
     Indication: SLEEP DISORDER THERAPY
     Dosage: ADDITIONAL INDICATION: BOUTS OF ANXIETY. THERAPY START DATE: LONG TIME AGO
     Route: 048
  7. LOPRIL-D [Concomitant]
     Indication: HYPERTENSION
     Dosage: HALF TAB IN THE MORNING AND HALF TAB AT NIGHT
  8. METICORTEN [Concomitant]
     Indication: RHEUMATOID ARTHRITIS
     Dosage: ONE TABLET A DAY
     Dates: start: 19940101

REACTIONS (5)
  - BLISTER [None]
  - DEAFNESS [None]
  - DEPRESSION [None]
  - ILL-DEFINED DISORDER [None]
  - INSOMNIA [None]
